FAERS Safety Report 6461150-1 (Version None)
Quarter: 2009Q4

REPORT INFORMATION
  Report Type: 
  Country: None (occurrence: None)
  Receive Date: 20091123
  Receipt Date: 20091109
  Transmission Date: 20100525
  Serious: Yes (Hospitalization, Other)
  Sender: FDA-Public Use
  Company Number: 2009AC000284

PATIENT
  Age: 56 Year
  Sex: Male

DRUGS (25)
  1. DIGOXIN [Suspect]
     Dosage: 0.125 MG; QD
     Dates: start: 20080122
  2. ALTACE [Concomitant]
  3. COUMADIN [Concomitant]
  4. LASIX [Concomitant]
  5. TOPROL-XL [Concomitant]
  6. ALDACTONE [Concomitant]
  7. RAMIPRIL [Concomitant]
  8. BETAMETHASONE [Concomitant]
  9. HYDROCODONE BITARTRATE AND ACETAMINOPHEN [Concomitant]
  10. ZYMAR [Concomitant]
  11. LUMIGAN [Concomitant]
  12. COREG [Concomitant]
  13. ACULAR [Concomitant]
  14. CEPHALEXIN [Concomitant]
  15. HYDRALAZINE HCL [Concomitant]
  16. CIPRO [Concomitant]
  17. CARDIZEM [Concomitant]
  18. LABETALOL HCL [Concomitant]
  19. PROTONIX [Concomitant]
  20. REMERON [Concomitant]
  21. ASPIRIN [Concomitant]
  22. NEXIUM [Concomitant]
  23. POTASSIUM CHLORIDE [Concomitant]
  24. COLACE [Concomitant]
  25. ATIVAN [Concomitant]

REACTIONS (34)
  - ABDOMINAL DISTENSION [None]
  - ABDOMINAL PAIN [None]
  - ABDOMINAL PAIN UPPER [None]
  - ANXIETY [None]
  - ANXIETY DISORDER [None]
  - ASCITES [None]
  - ATRIAL FIBRILLATION [None]
  - BLOOD BILIRUBIN INCREASED [None]
  - CARDIAC DISORDER [None]
  - CARDIAC FAILURE CONGESTIVE [None]
  - CARDIOMYOPATHY [None]
  - CEREBROVASCULAR ACCIDENT [None]
  - CHOLECYSTITIS [None]
  - CHOLELITHIASIS [None]
  - CORONARY ARTERY DISEASE [None]
  - DEPRESSION [None]
  - DIZZINESS [None]
  - DYSPNOEA [None]
  - FLATULENCE [None]
  - FLUID OVERLOAD [None]
  - HEART RATE IRREGULAR [None]
  - HEPATIC FUNCTION ABNORMAL [None]
  - HEPATOSPLENOMEGALY [None]
  - HYPERTENSION [None]
  - HYPERTENSIVE HEART DISEASE [None]
  - INTERNATIONAL NORMALISED RATIO INCREASED [None]
  - MYOCARDIAL INFARCTION [None]
  - NEPHROLITHIASIS [None]
  - PALPITATIONS [None]
  - PLEURAL EFFUSION [None]
  - PROTHROMBIN TIME PROLONGED [None]
  - SPLENIC INFARCTION [None]
  - TRANSIENT ISCHAEMIC ATTACK [None]
  - WEIGHT INCREASED [None]
